FAERS Safety Report 4969942-2 (Version None)
Quarter: 2006Q1

REPORT INFORMATION
  Report Type: 
  Country: None (occurrence: None)
  Receive Date: 20060202
  Receipt Date: 20050329
  Transmission Date: 20060701
  Serious: Yes (Hospitalization, Other)
  Sender: FDA-Public Use
  Company Number: PHEH2005US01511

PATIENT
  Age: 16 Year
  Sex: Male

DRUGS (2)
  1. RITALIN LA [Suspect]
     Indication: ATTENTION DEFICIT/HYPERACTIVITY DISORDER
     Dates: start: 20041109, end: 20041119
  2. RITALIN LA [Suspect]
     Indication: PSYCHOMOTOR HYPERACTIVITY
     Dates: start: 20041109, end: 20041119

REACTIONS (10)
  - ABNORMAL BEHAVIOUR [None]
  - ADVERSE DRUG REACTION [None]
  - AMNESIA [None]
  - DECREASED APPETITE [None]
  - HALLUCINATION [None]
  - HYPERSENSITIVITY [None]
  - PSYCHOTIC DISORDER [None]
  - STARING [None]
  - TINNITUS [None]
  - WEIGHT DECREASED [None]
